FAERS Safety Report 12701261 (Version 4)
Quarter: 2016Q4

REPORT INFORMATION
  Report Type: Spontaneous
  Country: AU (occurrence: AU)
  Receive Date: 20160831
  Receipt Date: 20161116
  Transmission Date: 20170207
  Serious: Yes (Hospitalization, Other)
  Sender: FDA-Public Use
  Company Number: AU-AMGEN-AUSSP2016110981

PATIENT
  Age: 77 Year
  Sex: Male
  Weight: 78 kg

DRUGS (15)
  1. SENSIPAR [Suspect]
     Active Substance: CINACALCET HYDROCHLORIDE
     Dosage: 60 MG, QOD
     Route: 065
  2. SERETIDE [Concomitant]
     Active Substance: FLUTICASONE PROPIONATE\SALMETEROL XINAFOATE
     Dosage: 2 PUFFS, BID
  3. VENTOLIN [Concomitant]
     Active Substance: ALBUTEROL SULFATE
     Dosage: 2 PUFFS, Q4H
  4. ASPIRIN. [Concomitant]
     Active Substance: ASPIRIN
     Dosage: UNK
  5. CARDIPRIN [Concomitant]
     Dosage: 100 MG, QD
  6. LANTUS [Concomitant]
     Active Substance: INSULIN GLARGINE
     Dosage: 40 IU, QD
  7. NOVORAPID [Concomitant]
     Active Substance: INSULIN ASPART
     Dosage: 7-10 IU, TID
  8. SENSIPAR [Suspect]
     Active Substance: CINACALCET HYDROCHLORIDE
     Indication: PRODUCT USED FOR UNKNOWN INDICATION
     Dosage: 90 MG, UNK
     Route: 065
  9. DIGOXIN. [Concomitant]
     Active Substance: DIGOXIN
     Dosage: UNK
  10. NEXIUM [Concomitant]
     Active Substance: ESOMEPRAZOLE MAGNESIUM
     Indication: REFLUX GASTRITIS
     Dosage: UNK
  11. RENAGEL [Concomitant]
     Active Substance: SEVELAMER HYDROCHLORIDE
     Dosage: UNK
  12. PARACETAMOL [Concomitant]
     Active Substance: ACETAMINOPHEN
     Dosage: 665 MG, TID
  13. SEVELAMER HYDROCHLORIDE [Concomitant]
     Active Substance: SEVELAMER HYDROCHLORIDE
     Dosage: 800 MG, TID
  14. SENSIPAR [Suspect]
     Active Substance: CINACALCET HYDROCHLORIDE
     Dosage: 30 MG, UNK
     Route: 065
  15. NORSPAN [Concomitant]
     Active Substance: BUPRENORPHINE
     Indication: PAIN
     Dosage: UNK

REACTIONS (31)
  - Blood alkaline phosphatase increased [Unknown]
  - Blood glucose increased [Unknown]
  - Carotid bruit [Unknown]
  - Blood magnesium increased [Unknown]
  - Quality of life decreased [Unknown]
  - Oedema peripheral [Unknown]
  - Blood pressure abnormal [Unknown]
  - Osteoporosis [Unknown]
  - Parathyroid disorder [Unknown]
  - Knee arthroplasty [Unknown]
  - Cardiovascular disorder [Unknown]
  - Blood creatinine increased [Unknown]
  - Blood albumin decreased [Unknown]
  - Blood phosphorus increased [Unknown]
  - Fall [Unknown]
  - Mitral valve incompetence [Unknown]
  - Bedridden [Unknown]
  - Blood potassium increased [Unknown]
  - Mobility decreased [Unknown]
  - Musculoskeletal discomfort [Not Recovered/Not Resolved]
  - Arthropathy [Unknown]
  - Pelvic fracture [Unknown]
  - Blood osmolarity increased [Unknown]
  - Discomfort [Unknown]
  - Blood bilirubin abnormal [Unknown]
  - Hypercalcaemia [Unknown]
  - Wheelchair user [Unknown]
  - Blood calcium increased [Unknown]
  - Decreased appetite [Unknown]
  - Back pain [Unknown]
  - Blood urea decreased [Unknown]

NARRATIVE: CASE EVENT DATE: 2014
